FAERS Safety Report 12063122 (Version 1)
Quarter: 2016Q1

REPORT INFORMATION
  Report Type: Spontaneous
  Country: US (occurrence: US)
  Receive Date: 20160210
  Receipt Date: 20160210
  Transmission Date: 20160526
  Serious: No
  Sender: FDA-Public Use
  Company Number: US-ALLERGAN-1501049US

PATIENT
  Sex: Female

DRUGS (2)
  1. BOTOX COSMETIC [Suspect]
     Active Substance: ONABOTULINUMTOXINA
     Indication: SKIN WRINKLING
     Dosage: 16 UNITS, SINGLE
     Route: 030
     Dates: start: 20141229, end: 20141229
  2. RESTASIS [Concomitant]
     Active Substance: CYCLOSPORINE
     Indication: DRY EYE

REACTIONS (1)
  - Dry eye [Recovering/Resolving]

NARRATIVE: CASE EVENT DATE: 20141229
